FAERS Safety Report 5676271-0 (Version None)
Quarter: 2008Q1

REPORT INFORMATION
  Report Type: 
  Country: None (occurrence: None)
  Receive Date: 20080321
  Receipt Date: 20080318
  Transmission Date: 20080703
  Serious: Yes (Hospitalization)
  Sender: FDA-Public Use
  Company Number: FR-BOEHRINGER INGELHEIM GMBH, GERMANY-2008-BP-04070RO

PATIENT
  Age: 62 Year
  Sex: Female

DRUGS (3)
  1. METHOTREXATE [Suspect]
     Indication: SYSTEMIC LUPUS ERYTHEMATOSUS
     Route: 030
     Dates: start: 20030101, end: 20050201
  2. PREDNISOLONE [Suspect]
     Indication: SYSTEMIC LUPUS ERYTHEMATOSUS
  3. FOLATES [Suspect]
     Indication: SUPPLEMENTATION THERAPY
     Dates: start: 20030101

REACTIONS (3)
  - ASCITES [None]
  - EPSTEIN-BARR VIRUS TEST POSITIVE [None]
  - HEPATITIS ACUTE [None]
